FAERS Safety Report 7007873-7 (Version None)
Quarter: 2010Q3

REPORT INFORMATION
  Report Type: 
  Country: None (occurrence: None)
  Receive Date: 20100922
  Receipt Date: 20100914
  Transmission Date: 20110219
  Serious: Yes (Life-Threatening)
  Sender: FDA-Public Use
  Company Number: FR-ROCHE-727364

PATIENT
  Sex: Female

DRUGS (8)
  1. AVASTIN [Suspect]
     Dosage: FORM: SOLUTION FOR INFUSION, STRENGTH: 25 MG/ML, DOSE LEVEL: 10 MG/KG; FREQ: BY COURSE
     Route: 042
     Dates: start: 20100709
  2. AVASTIN [Suspect]
     Dosage: DOSE LEVEL: 10 MG/KG
     Route: 042
     Dates: start: 20100806, end: 20100806
  3. TAXOL [Suspect]
     Dosage: DOSE LEVEL: 90 MG/M2,FREQ: BY COURSE
     Route: 042
     Dates: start: 20100709, end: 20100806
  4. CORTANCYL [Suspect]
     Indication: PRODUCT USED FOR UNKNOWN INDICATION
     Dosage: FREQ: BY COURSE
     Route: 048
     Dates: start: 20100709, end: 20100806
  5. SOLU-MEDROL [Suspect]
     Indication: PRODUCT USED FOR UNKNOWN INDICATION
     Dosage: FREQ: BY COURSE
     Route: 042
     Dates: start: 20100709, end: 20100806
  6. DEXCHLORPHENIRAMINE MALEATE [Concomitant]
     Dosage: RECEIVED ON DAY 1 AND 8 OF FIRST CYCLE AND DAY 1 OF SECOND CYCLE.
     Dates: start: 20100709
  7. ZOFRAN [Concomitant]
     Dosage: RECEIVED ON DAY 1 AND 8 OF FIRST CYCLE AND DAY 1 OF SECOND CYCLE.
     Dates: start: 20100709
  8. RANITIDINE [Concomitant]
     Dosage: RECEIVED ON DAY 1 AND 8 OF FIRST CYCLE AND DAY 1 OF SECOND CYCLE.
     Dates: start: 20100709

REACTIONS (2)
  - APHASIA [None]
  - HEMIPLEGIA [None]
